FAERS Safety Report 4892690-4 (Version None)
Quarter: 2006Q1

REPORT INFORMATION
  Report Type: 
  Country: None (occurrence: None)
  Receive Date: 20060125
  Receipt Date: 20060125
  Transmission Date: 20060701
  Serious: Yes (Hospitalization)
  Sender: FDA-Public Use
  Company Number: None

PATIENT
  Sex: Female
  Weight: 60 kg

DRUGS (1)
  1. WARFARIN 5MG [Suspect]
     Indication: DEEP VEIN THROMBOSIS
     Dosage: 5MG QHS
     Dates: start: 20050617, end: 20050623

REACTIONS (1)
  - INTERNATIONAL NORMALISED RATIO INCREASED [None]
